FAERS Safety Report 6955453-1 (Version None)
Quarter: 2010Q3

REPORT INFORMATION
  Report Type: 
  Country: None (occurrence: None)
  Receive Date: 20100830
  Receipt Date: 20100820
  Transmission Date: 20110219
  Serious: Yes (Other)
  Sender: FDA-Public Use
  Company Number: US-SANOFI-AVENTIS-2010SA050523

PATIENT
  Sex: Male

DRUGS (2)
  1. LANTUS [Suspect]
     Indication: TYPE 2 DIABETES MELLITUS
     Dosage: DOSE:50 UNIT(S)
     Route: 058
  2. OPTICLICK [Suspect]
     Dates: start: 20091201

REACTIONS (5)
  - BACK DISORDER [None]
  - CHEST DISCOMFORT [None]
  - MYALGIA [None]
  - ROAD TRAFFIC ACCIDENT [None]
  - SKELETAL INJURY [None]
